FAERS Safety Report 25065383 (Version 1)
Quarter: 2025Q1

REPORT INFORMATION
  Report Type: Spontaneous
  Country: CU (occurrence: CU)
  Receive Date: 20250311
  Receipt Date: 20250311
  Transmission Date: 20250409
  Serious: Yes (Death, Hospitalization, Other)
  Sender: BIOMARIN
  Company Number: CU-SAKK-2025SA066337AA

PATIENT

DRUGS (1)
  1. ALDURAZYME [Suspect]
     Active Substance: LARONIDASE
     Indication: Product used for unknown indication
     Route: 065

REACTIONS (4)
  - Death [Fatal]
  - Respiratory failure [Fatal]
  - Cyanosis [Fatal]
  - Muscle rigidity [Fatal]

NARRATIVE: CASE EVENT DATE: 20250301
